FAERS Safety Report 13596540 (Version 1)
Quarter: 2017Q2

REPORT INFORMATION
  Report Type: Spontaneous
  Country: FR (occurrence: FR)
  Receive Date: 20170531
  Receipt Date: 20170531
  Transmission Date: 20170830
  Serious: Yes (Death, Other)
  Sender: FDA-Public Use
  Company Number: FR-ALVOGEN-2017-ALVOGEN-092292

PATIENT
  Age: 87 Year
  Sex: Female

DRUGS (5)
  1. SERESTA [Suspect]
     Active Substance: OXAZEPAM
     Indication: ANXIETY
     Dates: start: 2015
  2. TENORMIN [Suspect]
     Active Substance: ATENOLOL
     Indication: SUPRAVENTRICULAR TACHYCARDIA
     Dates: start: 2012
  3. LEVOTHYROX [Suspect]
     Active Substance: LEVOTHYROXINE
     Indication: HYPOTHYROIDISM
     Dates: start: 2012
  4. LAMICTAL [Suspect]
     Active Substance: LAMOTRIGINE
     Indication: AGITATION
     Dates: start: 2016
  5. XARELTO [Suspect]
     Active Substance: RIVAROXABAN
     Indication: DEEP VEIN THROMBOSIS
     Dates: start: 201609, end: 201703

REACTIONS (1)
  - Cerebral haemorrhage [Fatal]

NARRATIVE: CASE EVENT DATE: 20170315
